FAERS Safety Report 5292619-3 (Version None)
Quarter: 2007Q2

REPORT INFORMATION
  Report Type: 
  Country: None (occurrence: None)
  Receive Date: 20070404
  Receipt Date: 20070323
  Transmission Date: 20071010
  Serious: Yes (Death, Hospitalization)
  Sender: FDA-Public Use
  Company Number: 2007US000623

PATIENT
  Age: 45 Year
  Sex: Female

DRUGS (6)
  1. AMBISOME [Suspect]
     Indication: MYCOSIS FUNGOIDES
     Dates: start: 20000524, end: 20000605
  2. CYMEVENE (GANCICLOVIR) [Suspect]
     Indication: CYTOMEGALOVIRUS INFECTION
     Dates: start: 20000601, end: 20000604
  3. PIPERACILLIN SODIUM AND TAZOBACTAM SODIUM [Suspect]
     Indication: MYCOSIS FUNGOIDES
     Dates: start: 20000602, end: 20000609
  4. PRECORTALON AQUOSUM (PREDNISOLONE SODIUM SUCCINATE) [Concomitant]
  5. PREDNISOLONE SODIUM SUCCINATE (PREDNISOLONE SODIUM SUCCINATE) [Concomitant]
  6. SANDIMMUNE [Concomitant]

REACTIONS (4)
  - CYTOMEGALOVIRUS TEST POSITIVE [None]
  - DRUG TOXICITY [None]
  - HEPATORENAL FAILURE [None]
  - VIRAL DNA TEST POSITIVE [None]
